FAERS Safety Report 18351695 (Version 1)
Quarter: 2020Q4

REPORT INFORMATION
  Report Type: Spontaneous
  Country: FR (occurrence: FR)
  Receive Date: 20201007
  Receipt Date: 20201007
  Transmission Date: 20210114
  Serious: Yes (Death, Other)
  Sender: FDA-Public Use
  Company Number: FR-AUROBINDO-AUR-APL-2020-050835

PATIENT
  Age: 16 Year
  Sex: Female

DRUGS (2)
  1. TRAMADOL. [Suspect]
     Active Substance: TRAMADOL
     Indication: DEPRESSED MOOD
     Dosage: UNK
     Route: 065
  2. CODEINE [Suspect]
     Active Substance: CODEINE
     Indication: DEPRESSED MOOD
     Dosage: 2 DOSAGE FORM
     Route: 065

REACTIONS (9)
  - Drug dependence [Fatal]
  - Diarrhoea [Unknown]
  - Pruritus [Unknown]
  - Pain [Unknown]
  - Intentional product misuse [Unknown]
  - Death [Fatal]
  - Cyanosis [Unknown]
  - Loss of consciousness [Unknown]
  - Tachycardia [Unknown]

NARRATIVE: CASE EVENT DATE: 20170422
